FAERS Safety Report 5382662-8 (Version None)
Quarter: 2007Q3

REPORT INFORMATION
  Report Type: 
  Country: None (occurrence: None)
  Receive Date: 20070703
  Receipt Date: 20070703
  Transmission Date: 20080115
  Serious: Yes (Congenital Anomaly, Other)
  Sender: FDA-Public Use
  Company Number: None

PATIENT
  Age: 3 Year
  Sex: Female
  Weight: 14 kg

DRUGS (1)
  1. CELEXA [Suspect]
     Indication: DEPRESSION
     Dosage: 20MG QD PO
     Route: 048
     Dates: start: 20030101, end: 20030501

REACTIONS (4)
  - AUTISM [None]
  - BREECH DELIVERY [None]
  - DRUG EXPOSURE DURING PREGNANCY [None]
  - MACROCEPHALY [None]
